FAERS Safety Report 8610186-0 (Version None)
Quarter: 2012Q3

REPORT INFORMATION
  Report Type: 
  Country: None (occurrence: None)
  Receive Date: 20120822
  Receipt Date: 20120814
  Transmission Date: 20120928
  Serious: No
  Sender: FDA-Public Use
  Company Number: US-BIOGENIDEC-2012BI031566

PATIENT
  Sex: Female

DRUGS (6)
  1. AVONEX [Suspect]
     Route: 030
     Dates: start: 20120701
  2. AVONEX [Suspect]
     Indication: MULTIPLE SCLEROSIS
     Route: 030
     Dates: start: 20110610, end: 20120624
  3. GABAPENTIN [Concomitant]
     Indication: NEUROPATHY PERIPHERAL
  4. TYLENOL [Concomitant]
     Indication: PREMEDICATION
  5. HYDROCODONE [Concomitant]
     Indication: BACK PAIN
  6. LISINOPRIL AND HYDROCHLOROTHIAZIDE [Concomitant]
     Indication: OEDEMA PERIPHERAL

REACTIONS (6)
  - COCCYDYNIA [None]
  - FALL [None]
  - HEADACHE [None]
  - POST-TRAUMATIC HEADACHE [None]
  - PAIN [None]
  - INSOMNIA [None]
